FAERS Safety Report 11655026 (Version 1)
Quarter: 2015Q4

REPORT INFORMATION
  Report Type: Spontaneous
  Country: JP (occurrence: JP)
  Receive Date: 20151023
  Receipt Date: 20151023
  Transmission Date: 20160304
  Serious: Yes (Hospitalization, Other)
  Sender: FDA-Public Use
  Company Number: JP-WATSON-2015-22128

PATIENT
  Age: 20 Year
  Sex: Male

DRUGS (1)
  1. OMEPRAZOLE (UNKNOWN) [Suspect]
     Active Substance: OMEPRAZOLE
     Indication: DUODENAL ULCER
     Dosage: 20 MG, BID
     Route: 042

REACTIONS (1)
  - Rhabdomyolysis [Recovered/Resolved]
